FAERS Safety Report 9096075 (Version 1)
Quarter: 2013Q1

REPORT INFORMATION
  Report Type: Spontaneous
  Country: MX (occurrence: MX)
  Receive Date: 20130207
  Receipt Date: 20130207
  Transmission Date: 20140127
  Serious: Yes (Death)
  Sender: FDA-Public Use
  Company Number: PHHY2013MX003961

PATIENT
  Age: 98 Year
  Sex: Female

DRUGS (1)
  1. EXELON PATCH [Suspect]
     Indication: DEMENTIA ALZHEIMER^S TYPE
     Dosage: 9.5 MG (10 CM2), DAILY
     Route: 062
     Dates: start: 201204

REACTIONS (4)
  - Infarction [Fatal]
  - Bronchitis [Fatal]
  - Increased upper airway secretion [Recovered/Resolved]
  - Anxiety [Recovered/Resolved]
